FAERS Safety Report 7714555-2 (Version None)
Quarter: 2011Q3

REPORT INFORMATION
  Report Type: 
  Country: None (occurrence: None)
  Receive Date: 20110804
  Receipt Date: 20110601
  Transmission Date: 20111222
  Serious: No
  Sender: FDA-Public Use
  Company Number: 2011-07720

PATIENT
  Age: 64 Year
  Sex: Male
  Weight: 88.4 kg

DRUGS (1)
  1. RAPAFLO [Suspect]
     Indication: BENIGN PROSTATIC HYPERPLASIA
     Dosage: 8 MG, DAILY, ORAL
     Route: 048
     Dates: start: 20110530, end: 20110531

REACTIONS (2)
  - BURNING SENSATION [None]
  - RETROGRADE EJACULATION [None]
